FAERS Safety Report 7730657-9 (Version None)
Quarter: 2011Q3

REPORT INFORMATION
  Report Type: 
  Country: None (occurrence: None)
  Receive Date: 20110906
  Receipt Date: 20110824
  Transmission Date: 20111222
  Serious: Yes (Death, Hospitalization)
  Sender: FDA-Public Use
  Company Number: US-GLAXOSMITHKLINE-A0768751A

PATIENT
  Age: 64 Year
  Sex: Male
  Weight: 83 kg

DRUGS (5)
  1. VIOXX [Concomitant]
  2. AVANDIA [Suspect]
     Indication: TYPE 2 DIABETES MELLITUS
     Dosage: 4MG PER DAY
     Route: 048
     Dates: start: 19990101, end: 20070901
  3. DILTIAZEM [Concomitant]
  4. NORVASC [Concomitant]
  5. LIPITOR [Concomitant]

REACTIONS (10)
  - STAPHYLOCOCCAL INFECTION [None]
  - CARDIAC FAILURE CONGESTIVE [None]
  - CORONARY ARTERY DISEASE [None]
  - PAIN [None]
  - ISCHAEMIC CARDIOMYOPATHY [None]
  - MYOCARDIAL INFARCTION [None]
  - CARDIAC ARREST [None]
  - SEPSIS [None]
  - PNEUMONIA [None]
  - ATRIAL FIBRILLATION [None]
